APPROVED DRUG PRODUCT: LEVETIRACETAM
Active Ingredient: LEVETIRACETAM
Strength: 100MG/ML
Dosage Form/Route: SOLUTION;ORAL
Application: A090893 | Product #001
Applicant: LUPIN LTD
Approved: Oct 17, 2011 | RLD: No | RS: No | Type: DISCN